FAERS Safety Report 7434139-3 (Version None)
Quarter: 2011Q2

REPORT INFORMATION
  Report Type: 
  Country: None (occurrence: None)
  Receive Date: 20110425
  Receipt Date: 20110418
  Transmission Date: 20111010
  Serious: No
  Sender: FDA-Public Use
  Company Number: US-PFIZER INC-2011084871

PATIENT
  Sex: Female
  Weight: 61.7 kg

DRUGS (3)
  1. ATIVAN [Concomitant]
     Indication: INFLUENZA
     Dosage: 0.5 MG, AS NEEDED
  2. PHENAZOPYRIDINE HCL TAB [Concomitant]
     Indication: INFLUENZA
     Dosage: 200 MG, AS NEEDED
  3. GABAPENTIN [Suspect]
     Indication: NEURALGIA
     Dosage: UNK
     Route: 048

REACTIONS (2)
  - MICTURITION DISORDER [None]
  - PAIN [None]
